FAERS Safety Report 11870533 (Version 1)
Quarter: 2015Q4

REPORT INFORMATION
  Report Type: Spontaneous
  Country: US (occurrence: US)
  Receive Date: 20151228
  Receipt Date: 20151228
  Transmission Date: 20160305
  Serious: Yes (Death)
  Sender: FDA-Public Use
  Company Number: US-SANOFI-AVENTIS-2012SA064070

PATIENT
  Sex: Male

DRUGS (1)
  1. PLAVIX [Suspect]
     Active Substance: CLOPIDOGREL BISULFATE
     Indication: CEREBROVASCULAR ACCIDENT
     Route: 065
     Dates: start: 200212

REACTIONS (4)
  - Thrombotic thrombocytopenic purpura [Fatal]
  - Cerebral haemorrhage [Fatal]
  - Internal haemorrhage [Fatal]
  - Cerebrovascular accident [Fatal]
